FAERS Safety Report 11992442 (Version 1)
Quarter: 2016Q1

REPORT INFORMATION
  Report Type: Spontaneous
  Country: US (occurrence: None)
  Receive Date: 20160202
  Receipt Date: 20160202
  Transmission Date: 20160526
  Serious: No
  Sender: FDA-Public Use
  Company Number: None

PATIENT
  Age: 20 Month
  Sex: Female
  Weight: 11.34 kg

DRUGS (3)
  1. INFANTS ADVIL CONCENTRATED DROPS [Concomitant]
     Active Substance: IBUPROFEN
  2. SEPTRA [Suspect]
     Active Substance: SULFAMETHOXAZOLE\TRIMETHOPRIM
     Indication: EAR INFECTION
     Route: 048
     Dates: start: 20160129, end: 20160129
  3. SINGULAIR [Concomitant]
     Active Substance: MONTELUKAST SODIUM

REACTIONS (6)
  - Insomnia [None]
  - Sleep terror [None]
  - Abnormal behaviour [None]
  - Rash [None]
  - Screaming [None]
  - Hallucination [None]

NARRATIVE: CASE EVENT DATE: 20160129
